FAERS Safety Report 7914187-7 (Version None)
Quarter: 2011Q4

REPORT INFORMATION
  Report Type: 
  Country: None (occurrence: None)
  Receive Date: 20111115
  Receipt Date: 20111115
  Transmission Date: 20120403
  Serious: Yes (Other)
  Sender: FDA-Public Use
  Company Number: None

PATIENT
  Age: 49 Year
  Sex: Female
  Weight: 49.895 kg

DRUGS (2)
  1. XARELTO [Suspect]
     Indication: POST PROCEDURAL COMPLICATION
     Dosage: 10MG
     Route: 048
     Dates: start: 20111112, end: 20111114
  2. XARELTO [Suspect]
     Indication: COAGULOPATHY
     Dosage: 10MG
     Route: 048
     Dates: start: 20111112, end: 20111114

REACTIONS (2)
  - NAUSEA [None]
  - HEADACHE [None]
